FAERS Safety Report 16970266 (Version 2)
Quarter: 2020Q1

REPORT INFORMATION
  Report Type: Spontaneous
  Country: AR (occurrence: AR)
  Receive Date: 20191029
  Receipt Date: 20200116
  Transmission Date: 20200409
  Serious: Yes (Other)
  Sender: FDA-Public Use
  Company Number: AR-PFIZER INC-2019467248

PATIENT
  Age: 77 Year
  Sex: Female

DRUGS (1)
  1. SUTENT [Suspect]
     Active Substance: SUNITINIB MALATE
     Indication: METASTATIC RENAL CELL CARCINOMA
     Dosage: UNK
     Dates: start: 20190107, end: 201909

REACTIONS (7)
  - Fear [Recovering/Resolving]
  - Eating disorder [Recovering/Resolving]
  - Mouth haemorrhage [Recovering/Resolving]
  - Anaemia [Recovering/Resolving]
  - Syncope [Unknown]
  - Ageusia [Recovering/Resolving]
  - Injury [Unknown]

NARRATIVE: CASE EVENT DATE: 2019
